FAERS Safety Report 8778491 (Version 1)
Quarter: 2012Q4

REPORT INFORMATION
  Report Type: 
  Country: LT (occurrence: LT)
  Receive Date: 20120912
  Receipt Date: 20120912
  Transmission Date: 20130627
  Serious: Yes (Other)
  Sender: FDA-Public Use
  Company Number: LT-GLAXOSMITHKLINE-B0829641A

PATIENT
  Age: 50 Year
  Sex: Female

DRUGS (3)
  1. TROBALT [Suspect]
     Indication: PARTIAL SEIZURES
     Route: 065
  2. TOPAMAX [Concomitant]
     Indication: EPILEPSY
  3. DEPAKINE [Concomitant]
     Indication: EPILEPSY

REACTIONS (1)
  - Epilepsy [Recovered/Resolved]
